FAERS Safety Report 4279286-2 (Version None)
Quarter: 2004Q1

REPORT INFORMATION
  Report Type: 
  Country: None (occurrence: None)
  Receive Date: 20040122
  Receipt Date: 20040109
  Transmission Date: 20041129
  Serious: Yes (Life-Threatening, Hospitalization, Other)
  Sender: FDA-Public Use
  Company Number: 2003124706

PATIENT
  Age: 51 Year
  Sex: Male

DRUGS (6)
  1. DIFLUCAN [Suspect]
     Indication: ENDOPHTHALMITIS
     Dosage: 400 MG (DAILY), INTRAVENOUS
     Route: 042
     Dates: start: 20031210, end: 20031211
  2. DIFLUCAN [Suspect]
     Indication: FUNGAL INFECTION
     Dosage: 400 MG (DAILY), INTRAVENOUS
     Route: 042
     Dates: start: 20031210, end: 20031211
  3. DIGOXIN [Suspect]
     Indication: ATRIAL FIBRILLATION
     Dosage: 0.125 MG (DAILY), INTRAVENOUS
     Route: 042
     Dates: start: 20031116, end: 20031202
  4. DIGOXIN [Suspect]
     Indication: ATRIAL FIBRILLATION
     Dosage: 0.125 MG (DAILY), INTRAVENOUS
     Route: 042
     Dates: start: 20031203, end: 20031211
  5. AMPICILLIN [Concomitant]
  6. CLINDAMYCIN (CLINDAMYCIN) [Concomitant]

REACTIONS (23)
  - ASPARTATE AMINOTRANSFERASE INCREASED [None]
  - BLOOD ALKALINE PHOSPHATASE INCREASED [None]
  - BLOOD BILIRUBIN INCREASED [None]
  - BLOOD CHLORIDE DECREASED [None]
  - BLOOD LACTATE DEHYDROGENASE INCREASED [None]
  - BLOOD PRESSURE SYSTOLIC INCREASED [None]
  - BLOOD SODIUM DECREASED [None]
  - BREATH HOLDING [None]
  - CONVULSION [None]
  - DEPRESSED LEVEL OF CONSCIOUSNESS [None]
  - ENCEPHALOPATHY [None]
  - ENDOPHTHALMITIS [None]
  - EYE INFECTION FUNGAL [None]
  - GAMMA-GLUTAMYLTRANSFERASE INCREASED [None]
  - HAEMATOCRIT DECREASED [None]
  - HAEMOGLOBIN DECREASED [None]
  - MULTI-ORGAN FAILURE [None]
  - MUSCULAR WEAKNESS [None]
  - MYOCARDIAL ISCHAEMIA [None]
  - MYOCLONUS [None]
  - VENTRICULAR FIBRILLATION [None]
  - VENTRICULAR TACHYCARDIA [None]
  - WHITE BLOOD CELL COUNT INCREASED [None]
